FAERS Safety Report 17939751 (Version 2)
Quarter: 2020Q3

REPORT INFORMATION
  Report Type: Other
  Country: US (occurrence: US)
  Receive Date: 20200625
  Receipt Date: 20200722
  Transmission Date: 20201103
  Serious: Yes (Hospitalization, Other)
  Sender: FDA-Public Use
  Company Number: US-ROCHE-2625466

PATIENT
  Age: 54 Year
  Sex: Female
  Weight: 88.53 kg

DRUGS (6)
  1. LAMICTAL [Concomitant]
     Active Substance: LAMOTRIGINE
     Route: 048
  2. ESTRADIOL. [Concomitant]
     Active Substance: ESTRADIOL
     Route: 048
  3. MAXZIDE [Concomitant]
     Active Substance: HYDROCHLOROTHIAZIDE\TRIAMTERENE
     Dosage: 1/2 TABLET EVERY OTHER DAY ;ONGOING: YES
     Route: 048
  4. VITAMIN B12 [Concomitant]
     Active Substance: CYANOCOBALAMIN
  5. OCREVUS [Suspect]
     Active Substance: OCRELIZUMAB
     Indication: RELAPSING-REMITTING MULTIPLE SCLEROSIS
     Route: 065
     Dates: start: 20190613
  6. PREVACID [Concomitant]
     Active Substance: LANSOPRAZOLE
     Route: 048

REACTIONS (10)
  - Escherichia infection [Recovered/Resolved]
  - Urinary retention [Not Recovered/Not Resolved]
  - Dehydration [Recovered/Resolved]
  - Onychoclasis [Not Recovered/Not Resolved]
  - Polyp [Unknown]
  - Metaplasia [Not Recovered/Not Resolved]
  - Diarrhoea [Not Recovered/Not Resolved]
  - Feeding disorder [Recovered/Resolved]
  - Intestinal metaplasia [Not Recovered/Not Resolved]
  - Electrocardiogram QT prolonged [Recovered/Resolved]

NARRATIVE: CASE EVENT DATE: 20190706
